FAERS Safety Report 6445351-4 (Version None)
Quarter: 2009Q4

REPORT INFORMATION
  Report Type: 
  Country: None (occurrence: None)
  Receive Date: 20091118
  Receipt Date: 20091112
  Transmission Date: 20100525
  Serious: Yes (Other)
  Sender: FDA-Public Use
  Company Number: US-ABBOTT-09P-163-0608292-00

PATIENT
  Sex: Male

DRUGS (3)
  1. NIASPAN [Suspect]
     Indication: CAROTID ARTERY STENOSIS
     Dates: start: 20070101
  2. NIASPAN [Suspect]
     Indication: VASCULAR GRAFT
  3. ASPIRIN [Concomitant]
     Indication: DRUG USE FOR UNKNOWN INDICATION

REACTIONS (5)
  - DRY SKIN [None]
  - FLUSHING [None]
  - INCREASED TENDENCY TO BRUISE [None]
  - KNEE OPERATION [None]
  - RASH MACULAR [None]
